FAERS Safety Report 15783317 (Version 1)
Quarter: 2019Q1

REPORT INFORMATION
  Report Type: Report from Study
  Country: IL (occurrence: IL)
  Receive Date: 20190102
  Receipt Date: 20190102
  Transmission Date: 20190417
  Serious: Yes (Disabling)
  Sender: FDA-Public Use
  Company Number: IL-SA-2018SA265494

PATIENT
  Age: 44 Year
  Sex: Male

DRUGS (1)
  1. INSULIN GLARGINE [Suspect]
     Active Substance: INSULIN GLARGINE
     Dosage: 15 U, QD
     Route: 058
     Dates: start: 20180814

REACTIONS (3)
  - Pain in extremity [Recovering/Resolving]
  - Hyperhidrosis [Not Recovered/Not Resolved]
  - Peripheral swelling [Recovering/Resolving]
